FAERS Safety Report 6176150-9 (Version None)
Quarter: 2009Q2

REPORT INFORMATION
  Report Type: 
  Country: None (occurrence: None)
  Receive Date: 20090501
  Receipt Date: 20080918
  Transmission Date: 20091009
  Serious: Yes (Hospitalization)
  Sender: FDA-Public Use
  Company Number: US-ALEXION-A200800065

PATIENT

DRUGS (26)
  1. SOLIRIS [Suspect]
     Indication: PAROXYSMAL NOCTURNAL HAEMOGLOBINURIA
     Dosage: 600 MG, SINGLE
     Route: 042
     Dates: start: 20080319, end: 20080319
  2. SOLIRIS [Suspect]
     Dosage: 600 MG, SINGLE
     Route: 042
     Dates: start: 20080326, end: 20080326
  3. SOLIRIS [Suspect]
     Dosage: 600 MG, SINGLE
     Route: 042
     Dates: start: 20080402, end: 20080402
  4. SOLIRIS [Suspect]
     Dosage: 600 MG, SINGLE
     Route: 042
     Dates: start: 20080409, end: 20080409
  5. SOLIRIS [Suspect]
     Dosage: 900 MG, SINGLE
     Route: 042
     Dates: start: 20080416, end: 20080416
  6. SOLIRIS [Suspect]
     Dosage: 900 MG, SINGLE
     Route: 042
     Dates: start: 20080430, end: 20080430
  7. SOLIRIS [Suspect]
     Dosage: 900 MG, SINGLE
     Route: 042
     Dates: start: 20080514, end: 20080514
  8. SOLIRIS [Suspect]
     Dosage: 900 MG, SINGLE
     Route: 042
     Dates: start: 20080528, end: 20080528
  9. SOLIRIS [Suspect]
     Dosage: 900 MG, SINGLE
     Route: 042
     Dates: start: 20080611, end: 20080611
  10. SOLIRIS [Suspect]
     Dosage: 900 MG, SINGLE
     Route: 042
     Dates: start: 20080623, end: 20080623
  11. SOLIRIS [Suspect]
     Dosage: 900 MG, SINGLE
     Route: 042
     Dates: start: 20080703, end: 20080703
  12. TYLENOL (CAPLET) [Concomitant]
     Indication: PREMEDICATION
     Dosage: UNK, SINGLE
     Dates: start: 20080319, end: 20080319
  13. TYLENOL (CAPLET) [Concomitant]
     Dosage: UNK, SINGLE
     Dates: start: 20080402, end: 20080402
  14. TYLENOL (CAPLET) [Concomitant]
     Dosage: UNK, SINGLE
     Dates: start: 20080409, end: 20080409
  15. TYLENOL (CAPLET) [Concomitant]
     Dosage: UNK, SINGLE
     Dates: start: 20080416, end: 20080416
  16. BACTRIM [Concomitant]
  17. LOVENOX [Concomitant]
  18. KEPPRA [Concomitant]
     Dosage: UNK, UNK
  19. BENADRYL [Concomitant]
     Indication: PREMEDICATION
     Dosage: UNK, SINGLE
     Dates: start: 20080319, end: 20080319
  20. BENADRYL [Concomitant]
     Dosage: UNK, SINGLE
     Dates: start: 20080402, end: 20080402
  21. BENADRYL [Concomitant]
     Dosage: UNK, SINGLE
     Dates: start: 20080409, end: 20080409
  22. BENADRYL [Concomitant]
     Dosage: UNK, SINGLE
     Dates: start: 20080416, end: 20080416
  23. DECADRON [Concomitant]
     Indication: PREMEDICATION
     Dosage: UNK, SINGLE
     Dates: start: 20080319, end: 20080319
  24. DECADRON [Concomitant]
     Dosage: UNK, SINGLE
     Dates: start: 20080402, end: 20080402
  25. DECADRON [Concomitant]
     Dosage: UNK, SINGLE
     Dates: start: 20080409, end: 20080409
  26. DECADRON [Concomitant]
     Dosage: UNK, SINGLE
     Dates: start: 20080416, end: 20080416

REACTIONS (9)
  - BLOOD LACTATE DEHYDROGENASE INCREASED [None]
  - HAEMOGLOBINURIA [None]
  - INSOMNIA [None]
  - MEDICAL DEVICE CHANGE [None]
  - ORAL HERPES [None]
  - OSTEOMYELITIS [None]
  - PYREXIA [None]
  - STAPHYLOCOCCAL INFECTION [None]
  - TOOTHACHE [None]
